FAERS Safety Report 16484159 (Version 1)
Quarter: 2019Q2

REPORT INFORMATION
  Report Type: Spontaneous
  Country: GB (occurrence: GB)
  Receive Date: 20190627
  Receipt Date: 20190627
  Transmission Date: 20190711
  Serious: Yes (Hospitalization)
  Sender: FDA-Public Use
  Company Number: GB-NOVOPROD-669201

PATIENT
  Sex: Female

DRUGS (1)
  1. NOVOMIX 30 [Suspect]
     Active Substance: INSULIN ASPART
     Indication: PRODUCT USED FOR UNKNOWN INDICATION
     Dosage: TWICE DAILY, BEFORE BREAKFAST AND BEFORE HER EVENING MEAL
     Route: 065

REACTIONS (1)
  - Diabetic complication [Unknown]
